FAERS Safety Report 14937942 (Version 1)
Quarter: 2018Q2

REPORT INFORMATION
  Report Type: Spontaneous
  Country: GB (occurrence: GB)
  Receive Date: 20180525
  Receipt Date: 20180525
  Transmission Date: 20180711
  Serious: Yes (Hospitalization, Other)
  Sender: FDA-Public Use
  Company Number: GB-MYLANLABS-2018M1033232

PATIENT
  Age: 10 Year
  Sex: Female

DRUGS (3)
  1. CARBIMAZOLE [Suspect]
     Active Substance: CARBIMAZOLE
     Indication: HYPERTHYROIDISM
  2. CARBIMAZOLE [Suspect]
     Active Substance: CARBIMAZOLE
     Dosage: 40 MG, UNK
  3. ATENOLOL. [Suspect]
     Active Substance: ATENOLOL
     Indication: HYPERTHYROIDISM

REACTIONS (8)
  - Hypotension [Unknown]
  - Atrioventricular block [Recovering/Resolving]
  - Drug effect incomplete [Unknown]
  - Bradycardia [Unknown]
  - Oropharyngeal pain [Unknown]
  - Chest pain [Unknown]
  - Nausea [Unknown]
  - Pyrexia [Unknown]
